FAERS Safety Report 14027793 (Version 1)
Quarter: 2017Q3

REPORT INFORMATION
  Report Type: Spontaneous
  Country: US (occurrence: US)
  Receive Date: 20170929
  Receipt Date: 20170929
  Transmission Date: 20171128
  Serious: Yes (Life-Threatening, Hospitalization, Other)
  Sender: FDA-Public Use
  Company Number: US-TORRENT-00003449

PATIENT
  Age: 28 Month
  Sex: Female

DRUGS (1)
  1. SILDENAFIL. [Suspect]
     Active Substance: SILDENAFIL

REACTIONS (4)
  - Drug administered to patient of inappropriate age [Unknown]
  - Cerebrovascular accident [Recovered/Resolved]
  - Sudden visual loss [Recovered/Resolved]
  - Diarrhoea [Unknown]
